FAERS Safety Report 5145638-1 (Version None)
Quarter: 2006Q4

REPORT INFORMATION
  Report Type: 
  Country: None (occurrence: None)
  Receive Date: 20061102
  Receipt Date: 20061024
  Transmission Date: 20070319
  Serious: Yes (Death, Hospitalization)
  Sender: FDA-Public Use
  Company Number: 2006US002388

PATIENT
  Age: 50 Year
  Sex: Female

DRUGS (2)
  1. PROGRAF [Suspect]
     Indication: PROPHYLAXIS AGAINST TRANSPLANT REJECTION
     Dates: start: 20051109, end: 20060216
  2. MYCOPHENOLATE MOFETIL [Concomitant]

REACTIONS (20)
  - ANAEMIA [None]
  - AZOTAEMIA [None]
  - BACK PAIN [None]
  - BLOOD GLUCOSE INCREASED [None]
  - COAGULOPATHY [None]
  - DEPRESSION [None]
  - DIARRHOEA [None]
  - ENTEROBACTER INFECTION [None]
  - GASTROINTESTINAL HAEMORRHAGE [None]
  - GENERAL PHYSICAL HEALTH DETERIORATION [None]
  - HAEMODIALYSIS [None]
  - HAEMODYNAMIC INSTABILITY [None]
  - MULTIPLE-DRUG RESISTANCE [None]
  - NO THERAPEUTIC RESPONSE [None]
  - OPPORTUNISTIC INFECTION [None]
  - RENAL IMPAIRMENT [None]
  - SEPSIS [None]
  - TRANSPLANT REJECTION [None]
  - URINARY TRACT INFECTION [None]
  - VOMITING [None]
